FAERS Safety Report 13393406 (Version 1)
Quarter: 2017Q1

REPORT INFORMATION
  Report Type: Spontaneous
  Country: FR (occurrence: FR)
  Receive Date: 20170331
  Receipt Date: 20170331
  Transmission Date: 20170429
  Serious: Yes (Other)
  Sender: FDA-Public Use
  Company Number: FR-PFIZER INC-2017135990

PATIENT
  Age: 35 Year
  Sex: Female

DRUGS (2)
  1. GENOTONORM [Suspect]
     Active Substance: SOMATROPIN
     Indication: PITUITARY TUMOUR BENIGN
     Dosage: 1 DF, 2X/DAY
     Route: 058
     Dates: start: 1991, end: 1992
  2. GENOTONORM [Suspect]
     Active Substance: SOMATROPIN
     Indication: HYPERPROLACTINAEMIA

REACTIONS (5)
  - Diabetes mellitus [Unknown]
  - Arthralgia [Unknown]
  - Inappropriate schedule of drug administration [Unknown]
  - Visual impairment [Unknown]
  - Acromegaly [Unknown]

NARRATIVE: CASE EVENT DATE: 1991
